FAERS Safety Report 15496520 (Version 1)
Quarter: 2018Q4

REPORT INFORMATION
  Report Type: Spontaneous
  Country: US (occurrence: US)
  Receive Date: 20181013
  Receipt Date: 20181013
  Transmission Date: 20190205
  Serious: Yes (Other)
  Sender: FDA-Public Use
  Company Number: US-JNJFOC-20181000080

PATIENT
  Age: 76 Year
  Sex: Female
  Weight: 98.88 kg

DRUGS (1)
  1. YONDELIS [Suspect]
     Active Substance: TRABECTEDIN
     Indication: LEIOMYOSARCOMA
     Route: 042
     Dates: start: 20180215

REACTIONS (2)
  - Product dose omission [Unknown]
  - Neutropenia [Unknown]

NARRATIVE: CASE EVENT DATE: 20180614
